FAERS Safety Report 9729948 (Version 1)
Quarter: 2013Q4

REPORT INFORMATION
  Report Type: Spontaneous
  Country: RO (occurrence: RO)
  Receive Date: 20131204
  Receipt Date: 20131204
  Transmission Date: 20140711
  Serious: Yes (Hospitalization, Other)
  Sender: FDA-Public Use
  Company Number: RO-TEVA-447220ISR

PATIENT
  Age: 31 Year
  Sex: Female

DRUGS (2)
  1. MYCOPHENOLIC ACID [Suspect]
     Indication: LUPUS NEPHRITIS
     Dosage: 2 GRAM DAILY;
     Route: 048
  2. METHYLPREDNISOLON [Concomitant]
     Indication: LUPUS NEPHRITIS

REACTIONS (2)
  - Joint tuberculosis [Recovered/Resolved]
  - Off label use [Unknown]
